FAERS Safety Report 23785600 (Version 1)
Quarter: 2024Q2

REPORT INFORMATION
  Report Type: Spontaneous
  Country: GB (occurrence: GB)
  Receive Date: 20240425
  Receipt Date: 20240425
  Transmission Date: 20240716
  Serious: Yes (Other)
  Sender: FDA-Public Use
  Company Number: GB-BRISTOL-MYERS SQUIBB COMPANY-2024-060563

PATIENT

DRUGS (1)
  1. ADCORTYL [Suspect]
     Active Substance: TRIAMCINOLONE ACETONIDE
     Indication: Alopecia areata

REACTIONS (2)
  - Tuberculosis [Unknown]
  - Injection site infection [Unknown]

NARRATIVE: CASE EVENT DATE: 20240101
